FAERS Safety Report 5817659-4 (Version None)
Quarter: 2008Q3

REPORT INFORMATION
  Report Type: 
  Country: None (occurrence: None)
  Receive Date: 20080722
  Receipt Date: 20080714
  Transmission Date: 20090109
  Serious: Yes (Hospitalization, Other)
  Sender: FDA-Public Use
  Company Number: JP-ABBOTT-08P-087-0462169-00

PATIENT
  Age: 56 Year
  Sex: Male
  Weight: 58 kg

DRUGS (10)
  1. KLARICID [Suspect]
     Indication: PULMONARY GRANULOMA
     Dosage: NOT REPORTED
     Route: 048
     Dates: start: 20060401, end: 20060502
  2. ITRACONAZOLE [Suspect]
     Indication: PULMONARY GRANULOMA
     Dates: start: 20060401, end: 20060512
  3. METHYLPREDNISOLONE [Concomitant]
     Indication: PULMONARY GRANULOMA
     Route: 048
     Dates: start: 20060401
  4. BACTRIM [Concomitant]
     Indication: PROPHYLAXIS
     Route: 048
     Dates: start: 20060323
  5. TEPRENONE [Concomitant]
     Indication: PROPHYLAXIS
     Route: 048
     Dates: start: 20060323
  6. THEOPHYLLINE [Concomitant]
     Indication: ASTHMA
     Route: 048
     Dates: start: 20060228
  7. TULOBUTEROL [Concomitant]
     Indication: ASTHMA
     Dates: start: 20060228
  8. BECLOMETHASONE DIPROPIONATE [Concomitant]
     Indication: ASTHMA
     Dates: start: 20060228
  9. ERYTHROMYCIN [Concomitant]
     Indication: BRONCHOPULMONARY ASPERGILLOSIS ALLERGIC
     Dosage: NOT REPORTED
  10. VORICONAZOLE [Concomitant]
     Indication: BRONCHOPULMONARY ASPERGILLOSIS ALLERGIC
     Dosage: NOT REPORTED

REACTIONS (1)
  - HEPATIC FUNCTION ABNORMAL [None]
